FAERS Safety Report 8197743-3 (Version None)
Quarter: 2012Q1

REPORT INFORMATION
  Report Type: 
  Country: None (occurrence: None)
  Receive Date: 20120309
  Receipt Date: 20120301
  Transmission Date: 20120608
  Serious: Yes (Other)
  Sender: FDA-Public Use
  Company Number: US-BAYER-2011-075695

PATIENT
  Age: 37 Year
  Sex: Female
  Weight: 56.689 kg

DRUGS (10)
  1. YAZ [Suspect]
     Indication: CONTRACEPTION
     Dosage: UNK
     Dates: start: 20010101, end: 20090101
  2. YASMIN [Suspect]
     Indication: CONTRACEPTION
     Dosage: UNK
     Dates: start: 20010101, end: 20090101
  3. ACETAMINOPHEN [Concomitant]
     Dosage: UNK
     Dates: start: 20000101, end: 20100101
  4. ATARAX [Concomitant]
     Dosage: UNK
     Dates: start: 20080828
  5. IBUPROFEN [Concomitant]
     Dosage: UNK
     Dates: start: 20000101, end: 20100101
  6. YASMIN [Suspect]
     Indication: ACNE
  7. PHENERGAN [Concomitant]
     Dosage: UNK
     Dates: start: 20080828
  8. NEXIUM [Concomitant]
     Dosage: UNK
     Dates: start: 20080828
  9. SPIRONOLACTONE [Concomitant]
     Dosage: UNK
     Dates: start: 20070101, end: 20080101
  10. YAZ [Suspect]
     Indication: ACNE

REACTIONS (4)
  - GALLBLADDER DISORDER [None]
  - PAIN [None]
  - INJURY [None]
  - EMOTIONAL DISTRESS [None]
